FAERS Safety Report 21005793 (Version 1)
Quarter: 2022Q2

REPORT INFORMATION
  Report Type: Spontaneous
  Country: US (occurrence: US)
  Receive Date: 20220624
  Receipt Date: 20220624
  Transmission Date: 20220721
  Serious: Yes (Hospitalization, Other)
  Sender: FDA-Public Use
  Company Number: US-MLMSERVICE-20220609-3600368-1

PATIENT
  Age: 53 Year
  Sex: Female

DRUGS (3)
  1. DURAGESIC [Suspect]
     Active Substance: FENTANYL
     Indication: Headache
     Dosage: CHEWING
     Route: 048
  2. DURAGESIC [Suspect]
     Active Substance: FENTANYL
     Indication: Neck pain
     Dosage: HEATING FOLLOWED BY VAPOR INHALATION
     Route: 055
  3. LITHIUM [Concomitant]
     Active Substance: LITHIUM
     Indication: Bipolar I disorder

REACTIONS (15)
  - Suicide attempt [Recovered/Resolved]
  - Drug dependence [Recovered/Resolved]
  - Drug withdrawal syndrome [Recovering/Resolving]
  - Intentional product misuse [Recovered/Resolved]
  - Tachycardia [Recovered/Resolved]
  - Abdominal pain [Recovered/Resolved]
  - Diarrhoea [Recovered/Resolved]
  - Pyrexia [Recovered/Resolved]
  - Euphoric mood [Recovered/Resolved]
  - Hyperhidrosis [Recovering/Resolving]
  - Shared psychotic disorder [Recovered/Resolved]
  - Intentional product use issue [Recovered/Resolved]
  - Respiratory symptom [Recovered/Resolved]
  - Lacrimation increased [Recovered/Resolved]
  - Restlessness [Recovering/Resolving]
